FAERS Safety Report 8630253 (Version 2)
Quarter: 2014Q1

REPORT INFORMATION
  Report Type: Spontaneous
  Country: US (occurrence: None)
  Receive Date: 20120323
  Receipt Date: 20130305
  Transmission Date: 20141002
  Serious: Yes (Hospitalization)
  Sender: FDA-Public Use
  Company Number: 163-21880-11062248

PATIENT
  Age: 69 Year
  Sex: Female
  Weight: 53.98 kg

DRUGS (12)
  1. REVLIMID [Suspect]
     Indication: PLASMA CELL MYELOMA
     Dosage: 7.5 MG, 1 IN 2 D, PO 5 MG, DAILY X 28 DAYS, PO
     Route: 048
     Dates: start: 20110111, end: 20110125
  2. ALPRAZOLAM [Concomitant]
  3. ASPIRIN [Concomitant]
  4. CALCIUM (CALCIUM) (UNKNOWN) [Concomitant]
  5. COREG (CARVEDILOL) (UNKNOWN) [Concomitant]
  6. LIPITOR [Concomitant]
  7. LISINOPRIL [Concomitant]
  8. PRILOSEC (OMEPRAZOLE) CAPSULES [Concomitant]
  9. VITAMIN D (ERGOCALCIFEROL) (UNKNOWN) [Concomitant]
  10. EPOGEN (EPOETIN ALFA) [Concomitant]
  11. PHOSLO (CALCIUM ACETATE) [Concomitant]
  12. NEPHROVITE [Concomitant]

REACTIONS (2)
  - Renal failure [None]
  - Cardiac failure congestive [None]
